FAERS Safety Report 20139125 (Version 1)
Quarter: 2021Q4

REPORT INFORMATION
  Report Type: Spontaneous
  Country: DE (occurrence: DE)
  Receive Date: 20211202
  Receipt Date: 20211202
  Transmission Date: 20220303
  Serious: Yes (Other)
  Sender: FDA-Public Use
  Company Number: DE-TEVA-2021-DE-1984539

PATIENT
  Age: 7 Decade
  Sex: Male

DRUGS (40)
  1. HYDROCHLOROTHIAZIDE\VALSARTAN [Suspect]
     Active Substance: HYDROCHLOROTHIAZIDE\VALSARTAN
     Indication: Hypertension
     Dosage: 1 DOSAGE FORMS DAILY; 1 DF CONTAINS 160 MG VALSARTAN AND 12.5 MG HYDROCHLOROTHIAZIDE
     Route: 048
     Dates: start: 20120220, end: 201301
  2. HYDROCHLOROTHIAZIDE\VALSARTAN [Suspect]
     Active Substance: HYDROCHLOROTHIAZIDE\VALSARTAN
     Indication: Hypertension
     Dosage: 1 DOSAGE FORMS DAILY; 1 DF CONTAINS 320 MG VALSARTAN AND 25 MG HYDROCHLOROTHIAZIDE
     Route: 048
     Dates: start: 20130513
  3. HYDROCHLOROTHIAZIDE\VALSARTAN [Suspect]
     Active Substance: HYDROCHLOROTHIAZIDE\VALSARTAN
     Dosage: 1 DOSAGE FORMS DAILY; 1 DF CONTAINS 320 MG VALSARTAN AND 25 MG HYDROCHLOROTHIAZIDE
     Route: 048
     Dates: start: 20140520
  4. HYDROCHLOROTHIAZIDE\VALSARTAN [Suspect]
     Active Substance: HYDROCHLOROTHIAZIDE\VALSARTAN
     Dosage: 1 DOSAGE FORMS DAILY; 1 DF CONTAINS 320 MG VALSARTAN AND 25 MG HYDROCHLOROTHIAZIDE
     Route: 048
     Dates: start: 20141216
  5. HYDROCHLOROTHIAZIDE\VALSARTAN [Suspect]
     Active Substance: HYDROCHLOROTHIAZIDE\VALSARTAN
     Dosage: 1 DOSAGE FORMS DAILY; 1 DF CONTAINS 320 MG VALSARTAN AND 25 MG HYDROCHLOROTHIAZIDE
     Route: 048
     Dates: start: 20150622
  6. HYDROCHLOROTHIAZIDE\VALSARTAN [Suspect]
     Active Substance: HYDROCHLOROTHIAZIDE\VALSARTAN
     Dosage: 1 DOSAGE FORMS DAILY; 1 DF CONTAINS 320 MG VALSARTAN AND 25 MG HYDROCHLOROTHIAZIDE
     Route: 048
     Dates: start: 20160114
  7. HYDROCHLOROTHIAZIDE\VALSARTAN [Suspect]
     Active Substance: HYDROCHLOROTHIAZIDE\VALSARTAN
     Dosage: 1 DOSAGE FORMS DAILY; 1 DF CONTAINS 320 MG VALSARTAN AND 25 MG HYDROCHLOROTHIAZIDE
     Route: 048
     Dates: start: 20160601
  8. HYDROCHLOROTHIAZIDE\VALSARTAN [Suspect]
     Active Substance: HYDROCHLOROTHIAZIDE\VALSARTAN
     Dosage: 1 DOSAGE FORMS DAILY; 1 DF CONTAINS 320 MG VALSARTAN AND 25 MG HYDROCHLOROTHIAZIDE
     Route: 048
     Dates: start: 20161115
  9. HYDROCHLOROTHIAZIDE\VALSARTAN [Suspect]
     Active Substance: HYDROCHLOROTHIAZIDE\VALSARTAN
     Dosage: 1 DOSAGE FORMS DAILY; 1 DF CONTAINS 320 MG VALSARTAN AND 25 MG HYDROCHLOROTHIAZIDE
     Route: 048
     Dates: start: 20170524
  10. HYDROCHLOROTHIAZIDE\VALSARTAN [Suspect]
     Active Substance: HYDROCHLOROTHIAZIDE\VALSARTAN
     Dosage: 1 DOSAGE FORMS DAILY; 1 DF CONTAINS 320 MG VALSARTAN AND 25 MG HYDROCHLOROTHIAZIDE
     Route: 048
     Dates: start: 20180115
  11. HYDROCHLOROTHIAZIDE\VALSARTAN [Suspect]
     Active Substance: HYDROCHLOROTHIAZIDE\VALSARTAN
     Indication: Hypertension
     Dosage: 1 DOSAGE FORMS DAILY; 1 DF CONTAINS 160 MG VALSARTAN AND 12.5 MG HYDROCHLOROTHIAZIDE
     Route: 048
     Dates: start: 20120116
  12. HYDROCHLOROTHIAZIDE\VALSARTAN [Suspect]
     Active Substance: HYDROCHLOROTHIAZIDE\VALSARTAN
     Dosage: 1 DOSAGE FORMS DAILY; 1 DF CONTAINS 160 MG VALSARTAN AND 12.5 MG HYDROCHLOROTHIAZIDE
     Route: 048
     Dates: start: 20130110
  13. VALSARTAN [Suspect]
     Active Substance: VALSARTAN
     Indication: Hypertension
     Route: 048
     Dates: start: 20141001
  14. VALSARTAN [Suspect]
     Active Substance: VALSARTAN
     Route: 048
     Dates: start: 20151014
  15. VALSARTAN [Suspect]
     Active Substance: VALSARTAN
     Route: 048
     Dates: start: 20160330
  16. VALSARTAN [Suspect]
     Active Substance: VALSARTAN
     Route: 048
     Dates: start: 20161010
  17. VALSARTAN [Suspect]
     Active Substance: VALSARTAN
     Route: 048
     Dates: start: 20170524
  18. Amlodipin Hexal [Concomitant]
     Dates: start: 20120220
  19. Etoricoxib (various MAH) [Concomitant]
     Dosage: ARCOXIA 60 MG AND ETORICOXIB STADA 60 MG
     Dates: start: 20160609, end: 2018
  20. FLUTICASONE FUROATE\SALMETEROL XINAFOATE [Concomitant]
     Active Substance: FLUTICASONE FUROATE\SALMETEROL XINAFOATE
     Dosage: 50 MICROGRAM SALMETEROL AND 500 MICROGRAM FLUTICASONE
     Dates: start: 20160303, end: 2016
  21. Metamizole (various MAH) [Concomitant]
     Dosage: BERLOSIN AND NOVAMINSULFON LICHTENSTEIN 500 MG
     Dates: start: 20160601
  22. BUPIVACAINE HYDROCHLORIDE [Concomitant]
     Active Substance: BUPIVACAINE HYDROCHLORIDE
     Dates: start: 20180201
  23. Budesonid (various MAH) [Concomitant]
     Dosage: BUDESONID ACIS NASAL SPRAY AND BUDES NASAL SPRAY
     Dates: start: 20120116
  24. Budesonid (various MAH) [Concomitant]
     Dosage: BUDESONID EASYH 0.2 MG
     Dates: start: 20130513
  25. ENOXAPARIN SODIUM [Concomitant]
     Active Substance: ENOXAPARIN SODIUM
     Dates: start: 20151028, end: 2015
  26. EUTHYROX [Concomitant]
     Active Substance: LEVOTHYROXINE SODIUM
     Dates: start: 20151016
  27. EUTHYROX [Concomitant]
     Active Substance: LEVOTHYROXINE SODIUM
     Dates: start: 20120220
  28. EUTHYROX [Concomitant]
     Active Substance: LEVOTHYROXINE SODIUM
     Dates: start: 20120309
  29. Ibuprofen (various MAH) [Concomitant]
     Dosage: IBUPROFEN 600 1A PHARMA, IBUFLAM 600 MG, IBUHEXAL 600, IBUPROFEN ABZ 600 MG, IBUPROFEN AL 600
     Dates: start: 20120126, end: 2017
  30. Omeprazol (various MAH) [Concomitant]
     Dosage: OMEPRAZOL STADA, OMEPRAZOL HEUMANN, OMEPRAZOL DEXCEL, OMEPRAZOL AL, OMEPRAZOL ABZ, OMEP
     Dates: start: 20120220
  31. Ortoton [Concomitant]
     Dates: start: 20150828
  32. Rantudil retard [Concomitant]
     Dates: start: 20151008, end: 2016
  33. SALBUHEXAL [Concomitant]
     Active Substance: ALBUTEROL
     Dates: start: 20130513
  34. Simvastatin (various MAH) [Concomitant]
     Dosage: SIMVA ARISTO, SIMVA BASICS, SIMVASTATIN 1A PHARMA, SIMVASTATIN ABZ
     Dates: start: 20131105
  35. TRAMADOL LIBRAPHARM [Concomitant]
     Dates: start: 20150828
  36. FLUTICASONE PROPIONATE\SALMETEROL XINAFOATE [Concomitant]
     Active Substance: FLUTICASONE PROPIONATE\SALMETEROL XINAFOATE
     Dates: start: 20150424
  37. ZOLPIDEM TARTRATE [Concomitant]
     Active Substance: ZOLPIDEM TARTRATE
     Indication: Initial insomnia
     Dates: start: 20141128
  38. Promethazin-Neurax [Concomitant]
     Dates: start: 20141218
  39. CEFUROXIME AXETIL [Concomitant]
     Active Substance: CEFUROXIME AXETIL
     Dates: start: 20151208
  40. LEVOFLOXACIN [Concomitant]
     Active Substance: LEVOFLOXACIN
     Dates: start: 20151215

REACTIONS (26)
  - Mental impairment [Unknown]
  - Anxiety disorder [Unknown]
  - Panic disorder [Unknown]
  - Product impurity [Unknown]
  - Fear of disease [Unknown]
  - Hyperhidrosis [Unknown]
  - Abdominal discomfort [Unknown]
  - Nausea [Unknown]
  - Disturbance in attention [Unknown]
  - Fear of death [Unknown]
  - Restlessness [Unknown]
  - Dyspnoea [Unknown]
  - Anxiety [Unknown]
  - Discomfort [Unknown]
  - Palpitations [Unknown]
  - Tremor [Unknown]
  - Dry mouth [Unknown]
  - Suffocation feeling [Unknown]
  - Hyperventilation [Unknown]
  - Chest pain [Unknown]
  - Sense of oppression [Unknown]
  - Dizziness [Unknown]
  - Feeling hot [Unknown]
  - Chills [Unknown]
  - Muscle tightness [Unknown]
  - Sleep disorder [Unknown]
